FAERS Safety Report 5893078-X (Version None)
Quarter: 2008Q3

REPORT INFORMATION
  Report Type: 
  Country: None (occurrence: None)
  Receive Date: 20080923
  Receipt Date: 20080225
  Transmission Date: 20090109
  Serious: No
  Sender: FDA-Public Use
  Company Number: US-ASTRAZENECA-2006UW07156

PATIENT
  Age: 18150 Day
  Sex: Female
  Weight: 88.2 kg

DRUGS (7)
  1. SEROQUEL [Suspect]
     Indication: SLEEP DISORDER
     Route: 048
     Dates: start: 20030301, end: 20060201
  2. SEROQUEL [Suspect]
     Indication: PSYCHOTIC DISORDER
     Route: 048
     Dates: start: 20030301, end: 20060201
  3. ZOLOFT [Concomitant]
     Dates: start: 20030401
  4. SINEQUAN [Concomitant]
     Route: 048
     Dates: start: 20040101
  5. ZOLOFT [Concomitant]
     Route: 048
  6. VIOXX [Concomitant]
     Route: 048
  7. ROBAXIN [Concomitant]
     Route: 048

REACTIONS (10)
  - BLINDNESS TRANSIENT [None]
  - BLOOD CHOLESTEROL INCREASED [None]
  - DIZZINESS [None]
  - HYPERGLYCAEMIA [None]
  - HYPERLIPIDAEMIA [None]
  - LOCALISED INFECTION [None]
  - NECK PAIN [None]
  - TYPE 2 DIABETES MELLITUS [None]
  - VISION BLURRED [None]
  - WEIGHT INCREASED [None]
